FAERS Safety Report 25653764 (Version 1)
Quarter: 2025Q3

REPORT INFORMATION
  Report Type: Spontaneous
  Country: US (occurrence: US)
  Receive Date: 20250807
  Receipt Date: 20250807
  Transmission Date: 20251020
  Serious: Yes (Other)
  Sender: MYLAN
  Company Number: US-MYLANLABS-2025M1065247

PATIENT
  Age: 86 Year
  Sex: Female

DRUGS (24)
  1. TRIAMCINOLONE [Suspect]
     Active Substance: TRIAMCINOLONE
     Indication: Pemphigoid
  2. TRIAMCINOLONE [Suspect]
     Active Substance: TRIAMCINOLONE
     Route: 061
  3. TRIAMCINOLONE [Suspect]
     Active Substance: TRIAMCINOLONE
     Route: 061
  4. TRIAMCINOLONE [Suspect]
     Active Substance: TRIAMCINOLONE
  5. PREDNISONE [Suspect]
     Active Substance: PREDNISONE
     Indication: Pemphigoid
  6. PREDNISONE [Suspect]
     Active Substance: PREDNISONE
     Route: 048
  7. PREDNISONE [Suspect]
     Active Substance: PREDNISONE
     Route: 048
  8. PREDNISONE [Suspect]
     Active Substance: PREDNISONE
  9. NELVUTAMIG [Concomitant]
     Active Substance: NELVUTAMIG
     Indication: Metastatic neoplasm
  10. NELVUTAMIG [Concomitant]
     Active Substance: NELVUTAMIG
     Indication: Soft tissue sarcoma
     Route: 065
  11. NELVUTAMIG [Concomitant]
     Active Substance: NELVUTAMIG
     Route: 065
  12. NELVUTAMIG [Concomitant]
     Active Substance: NELVUTAMIG
  13. NIVOLUMAB [Concomitant]
     Active Substance: NIVOLUMAB
     Indication: Metastatic neoplasm
  14. NIVOLUMAB [Concomitant]
     Active Substance: NIVOLUMAB
     Indication: Soft tissue sarcoma
     Route: 065
  15. NIVOLUMAB [Concomitant]
     Active Substance: NIVOLUMAB
     Route: 065
  16. NIVOLUMAB [Concomitant]
     Active Substance: NIVOLUMAB
  17. RIBOCICLIB [Concomitant]
     Active Substance: RIBOCICLIB
     Indication: Metastatic neoplasm
  18. RIBOCICLIB [Concomitant]
     Active Substance: RIBOCICLIB
     Indication: Soft tissue sarcoma
     Route: 065
  19. RIBOCICLIB [Concomitant]
     Active Substance: RIBOCICLIB
     Route: 065
  20. RIBOCICLIB [Concomitant]
     Active Substance: RIBOCICLIB
  21. ANASTROZOLE [Concomitant]
     Active Substance: ANASTROZOLE
     Indication: Metastatic neoplasm
  22. ANASTROZOLE [Concomitant]
     Active Substance: ANASTROZOLE
     Indication: Soft tissue sarcoma
     Route: 065
  23. ANASTROZOLE [Concomitant]
     Active Substance: ANASTROZOLE
     Route: 065
  24. ANASTROZOLE [Concomitant]
     Active Substance: ANASTROZOLE

REACTIONS (1)
  - Drug ineffective [Unknown]
